FAERS Safety Report 4709701-9 (Version None)
Quarter: 2005Q3

REPORT INFORMATION
  Report Type: 
  Country: None (occurrence: None)
  Receive Date: 20050707
  Receipt Date: 20050622
  Transmission Date: 20060218
  Serious: Yes (Hospitalization, Other)
  Sender: FDA-Public Use
  Company Number: USA0506101049

PATIENT
  Age: 66 Year
  Sex: Female
  Weight: 45.3597 kg

DRUGS (3)
  1. FORTEO [Suspect]
     Indication: OSTEOPOROSIS
     Dosage: 20 UG/1 DAY
     Dates: start: 20040401
  2. ATENOLOL [Concomitant]
  3. HYDROCHLOROTHIAZIDE [Concomitant]

REACTIONS (5)
  - BALANCE DISORDER [None]
  - CONTUSION [None]
  - FALL [None]
  - HUMERUS FRACTURE [None]
  - OEDEMA PERIPHERAL [None]
